FAERS Safety Report 10260778 (Version 9)
Quarter: 2015Q4

REPORT INFORMATION
  Report Type: Report from Study
  Country: PT (occurrence: PT)
  Receive Date: 20140626
  Receipt Date: 20151101
  Transmission Date: 20160304
  Serious: Yes (Hospitalization)
  Sender: FDA-Public Use
  Company Number: PT-ROCHE-1424456

PATIENT
  Age: 68 Year
  Sex: Female
  Weight: 75.6 kg

DRUGS (16)
  1. TRASTUZUMAB EMTANSINE [Suspect]
     Active Substance: ADO-TRASTUZUMAB EMTANSINE
     Indication: HER-2 POSITIVE BREAST CANCER
     Dosage: DOSE: 273.6 MG, DATE OF MOST RECENT DOSE PRIOR TO EVENT ONSET: 02/JUN/2014?ON 23/JUN/2014, DOSE WAS
     Route: 042
     Dates: start: 20140127
  2. GABAPENTIN. [Concomitant]
     Active Substance: GABAPENTIN
     Route: 065
     Dates: start: 20140603
  3. PARACETAMOL [Concomitant]
     Active Substance: ACETAMINOPHEN
     Route: 065
     Dates: start: 201311
  4. TRASTUZUMAB EMTANSINE [Suspect]
     Active Substance: ADO-TRASTUZUMAB EMTANSINE
     Route: 042
     Dates: start: 20140709
  5. OPTREX (UNITED KINGDOM) [Concomitant]
     Route: 065
     Dates: start: 20140421
  6. SERTRALINE [Concomitant]
     Active Substance: SERTRALINE HYDROCHLORIDE
     Route: 065
     Dates: start: 20130316
  7. TRASTUZUMAB EMTANSINE [Suspect]
     Active Substance: ADO-TRASTUZUMAB EMTANSINE
     Dosage: DOSE WAS REDUCED TO 228.6 MG ON 23 JUN 2014
     Route: 042
     Dates: start: 20140623, end: 20140707
  8. BUCAGEL (PORTUGAL) [Concomitant]
     Dosage: AT 87 MG/G
     Route: 065
     Dates: start: 20140602
  9. LEPICORTINOLO [Concomitant]
     Active Substance: PREDNISOLONE
     Route: 065
     Dates: start: 20140422
  10. PANTOPRAZOL [Concomitant]
     Active Substance: PANTOPRAZOLE SODIUM
     Route: 065
     Dates: start: 20140310
  11. TRAMADOL. [Concomitant]
     Active Substance: TRAMADOL
     Route: 065
     Dates: start: 201311
  12. METOCLOPRAMIDE. [Concomitant]
     Active Substance: METOCLOPRAMIDE
     Route: 065
     Dates: start: 2013
  13. SUCRALFATE. [Concomitant]
     Active Substance: SUCRALFATE
     Route: 065
     Dates: start: 20140121
  14. CONCOR [Concomitant]
     Active Substance: BISOPROLOL FUMARATE
     Route: 065
     Dates: start: 200601
  15. SIMVASTATIN. [Concomitant]
     Active Substance: SIMVASTATIN
     Route: 065
     Dates: start: 199909
  16. LOVENOX [Concomitant]
     Active Substance: ENOXAPARIN SODIUM
     Route: 065
     Dates: start: 20081104

REACTIONS (1)
  - Leukoencephalopathy [Recovering/Resolving]

NARRATIVE: CASE EVENT DATE: 20140619
